FAERS Safety Report 8074018-4 (Version None)
Quarter: 2012Q1

REPORT INFORMATION
  Report Type: 
  Country: None (occurrence: None)
  Receive Date: 20120126
  Receipt Date: 20120116
  Transmission Date: 20120608
  Serious: Yes (Death)
  Sender: FDA-Public Use
  Company Number: US-ABBOTT-11P-163-0836700-00

PATIENT
  Sex: Male
  Weight: 67.192 kg

DRUGS (17)
  1. MINOCYCLINE HCL [Concomitant]
     Dates: start: 20091222, end: 20100601
  2. ULTRACET [Concomitant]
     Indication: SPONDYLITIS
     Dates: start: 20090909, end: 20110703
  3. MINOCYCLINE HCL [Concomitant]
     Dates: start: 20100601, end: 20110703
  4. FINASTERIDE [Concomitant]
     Indication: ALOPECIA
     Dates: start: 20070201, end: 20110703
  5. KLONOPIN [Concomitant]
     Indication: ANXIETY
     Dates: start: 20100409, end: 20110110
  6. IBUPROFEN [Concomitant]
     Indication: LIGAMENT SPRAIN
     Dates: start: 20110303, end: 20110703
  7. MELOXICAM [Concomitant]
     Indication: SPONDYLITIS
     Dates: start: 20090724, end: 20091216
  8. VICODIN [Concomitant]
     Indication: HAEMORRHOIDS
     Dates: start: 20100620, end: 20100622
  9. TRAZODONE HCL [Concomitant]
     Indication: INSOMNIA
     Dates: start: 20110111, end: 20110401
  10. HUMIRA [Suspect]
     Indication: SPONDYLITIS
     Route: 058
     Dates: start: 20090923, end: 20091202
  11. IBUPROFEN [Concomitant]
     Indication: CONTUSION
     Dates: start: 20100724, end: 20100901
  12. KLONOPIN [Concomitant]
     Dates: start: 20110401, end: 20110603
  13. CLOTRIMAZOLE [Concomitant]
     Indication: TINEA CRURIS
     Dates: start: 20100501, end: 20110201
  14. HUMIRA [Suspect]
     Dates: start: 20091216, end: 20110619
  15. MINOCYCLINE HCL [Concomitant]
     Indication: ACNE
     Dates: start: 19890101, end: 20091221
  16. VICODIN [Concomitant]
     Indication: LIGAMENT SPRAIN
     Dates: start: 20110315, end: 20110330
  17. VICODIN [Concomitant]
     Indication: PAIN

REACTIONS (1)
  - CARDIOPULMONARY FAILURE [None]
